FAERS Safety Report 25784652 (Version 2)
Quarter: 2025Q4

REPORT INFORMATION
  Report Type: Spontaneous
  Country: JP (occurrence: JP)
  Receive Date: 20250910
  Receipt Date: 20251002
  Transmission Date: 20260117
  Serious: Yes (Other)
  Sender: Phathom Pharmaceuticals
  Company Number: JP-PHATHOM PHARMACEUTICALS INC.-2025PHT02426

PATIENT
  Age: 8 Decade
  Sex: Female

DRUGS (4)
  1. VONOPRAZAN FUMARATE [Suspect]
     Active Substance: VONOPRAZAN FUMARATE
     Indication: Gastrooesophageal reflux disease
     Dosage: 10 MG, 1X/DAY
     Route: 048
     Dates: start: 20230519, end: 20250512
  2. CANDESARTAN [Concomitant]
     Active Substance: CANDESARTAN
  3. CELECOXIB [Concomitant]
     Active Substance: CELECOXIB
  4. KETOPROFEN [Concomitant]
     Active Substance: KETOPROFEN

REACTIONS (2)
  - Inappropriate antidiuretic hormone secretion [Recovered/Resolved]
  - Prescribed underdose [Recovered/Resolved]

NARRATIVE: CASE EVENT DATE: 20230519
